FAERS Safety Report 14894878 (Version 1)
Quarter: 2018Q2

REPORT INFORMATION
  Report Type: Spontaneous
  Country: US (occurrence: US)
  Receive Date: 20180515
  Receipt Date: 20180515
  Transmission Date: 20180711
  Serious: No
  Sender: FDA-Public Use
  Company Number: US-ASTRAZENECA-2018SE51889

PATIENT
  Age: 81 Year
  Sex: Male
  Weight: 86.2 kg

DRUGS (12)
  1. BRILINTA [Suspect]
     Active Substance: TICAGRELOR
     Indication: STENT PLACEMENT
     Route: 048
     Dates: start: 201412
  2. LABATAINI [Concomitant]
     Indication: VASODILATATION
  3. FUROSEMIDE. [Concomitant]
     Active Substance: FUROSEMIDE
  4. FLOMAX [Concomitant]
     Active Substance: TAMSULOSIN HYDROCHLORIDE
     Indication: POLLAKIURIA
  5. LISINOPRIL. [Suspect]
     Active Substance: LISINOPRIL
     Dosage: 40.0MG UNKNOWN
     Route: 048
  6. NORVASC [Concomitant]
     Active Substance: AMLODIPINE BESYLATE
  7. VESICARE [Concomitant]
     Active Substance: SOLIFENACIN SUCCINATE
  8. ASPIRIN. [Concomitant]
     Active Substance: ASPIRIN
  9. SINGULAIR [Concomitant]
     Active Substance: MONTELUKAST SODIUM
     Indication: ASTHMA
  10. COLACE [Concomitant]
     Active Substance: DOCUSATE SODIUM
     Indication: FAECES HARD
  11. GLYBURIDE. [Concomitant]
     Active Substance: GLYBURIDE
     Indication: BLOOD GLUCOSE ABNORMAL
  12. PRAVASTATIN. [Concomitant]
     Active Substance: PRAVASTATIN
     Indication: BLOOD CHOLESTEROL

REACTIONS (2)
  - Cataract [Not Recovered/Not Resolved]
  - Cardiac disorder [Unknown]
